FAERS Safety Report 4746970-3 (Version None)
Quarter: 2005Q3

REPORT INFORMATION
  Report Type: 
  Country: None (occurrence: None)
  Receive Date: 20050817
  Receipt Date: 20050808
  Transmission Date: 20060218
  Serious: Yes (Other)
  Sender: FDA-Public Use
  Company Number: DE-JNJFOC-20050704036

PATIENT
  Sex: Female
  Weight: 75 kg

DRUGS (1)
  1. RISPERDAL [Suspect]
     Route: 048
     Dates: start: 20020201

REACTIONS (1)
  - RETINAL VEIN OCCLUSION [None]
